FAERS Safety Report 4999457-7 (Version None)
Quarter: 2006Q2

REPORT INFORMATION
  Report Type: 
  Country: None (occurrence: None)
  Receive Date: 20060510
  Receipt Date: 20060510
  Transmission Date: 20061013
  Serious: Yes (Life-Threatening)
  Sender: FDA-Public Use
  Company Number: None

PATIENT
  Age: 54 Year
  Sex: Female
  Weight: 81.8 kg

DRUGS (13)
  1. BACLOFEN [Suspect]
     Indication: MULTIPLE SCLEROSIS
     Dosage: 64-100MCG/DAY  IT
     Route: 038
     Dates: start: 20060301, end: 20060306
  2. BACLOFEN [Suspect]
     Indication: MUSCLE SPASTICITY
     Dosage: 64-100MCG/DAY  IT
     Route: 038
     Dates: start: 20060301, end: 20060306
  3. OLANZAPINE [Concomitant]
  4. CETIRIZINE [Concomitant]
  5. PREDNISONE TAB [Concomitant]
  6. LANSOPRAZOLE [Concomitant]
  7. GABAPENTIN [Concomitant]
  8. DANTROLENE [Concomitant]
  9. AMITRIPTYLINE HCL [Concomitant]
  10. ACETAMINOPHEN [Concomitant]
  11. VANCOMYCIN [Concomitant]
  12. OXYCODONE [Concomitant]
  13. WARFARIN SODIUM [Concomitant]

REACTIONS (7)
  - DRUG WITHDRAWAL SYNDROME [None]
  - DYSPNOEA [None]
  - LOSS OF CONSCIOUSNESS [None]
  - MENTAL STATUS CHANGES [None]
  - OXYGEN SATURATION DECREASED [None]
  - RESPIRATORY ARREST [None]
  - STATUS EPILEPTICUS [None]
